FAERS Safety Report 5836517-2 (Version None)
Quarter: 2008Q3

REPORT INFORMATION
  Report Type: 
  Country: None (occurrence: None)
  Receive Date: 20080807
  Receipt Date: 20080804
  Transmission Date: 20090109
  Serious: Yes (Hospitalization, Other)
  Sender: FDA-Public Use
  Company Number: JP-BAYER-200811281BYL

PATIENT
  Age: 63 Year
  Sex: Female

DRUGS (4)
  1. ADALAT [Suspect]
     Route: 048
     Dates: start: 19940101
  2. ADALAT [Suspect]
     Route: 048
     Dates: start: 20040501
  3. ENALAPRIL MALEATE [Concomitant]
     Route: 048
     Dates: start: 19940101
  4. UNKNOWN DRUGS [Concomitant]
     Route: 065

REACTIONS (2)
  - CHEST X-RAY ABNORMAL [None]
  - LUNG DISORDER [None]
